FAERS Safety Report 15265172 (Version 1)
Quarter: 2018Q3

REPORT INFORMATION
  Report Type: Spontaneous
  Country: US (occurrence: US)
  Receive Date: 20180810
  Receipt Date: 20180810
  Transmission Date: 20181010
  Serious: Yes (Hospitalization)
  Sender: FDA-Public Use
  Company Number: US-LPDUSPRD-20181412

PATIENT
  Age: 25 Year
  Sex: Female

DRUGS (3)
  1. CYCLOSPORINE INJECTION, USP (866?10) [Suspect]
     Active Substance: CYCLOSPORINE
     Dosage: UNKNOWN
     Route: 065
  2. CORTICOSTEROIDS [Suspect]
     Active Substance: CORTICOSTEROID NOS
     Dosage: UNKNOWN
     Route: 065
  3. RITUXIMAB. [Concomitant]
     Active Substance: RITUXIMAB
     Dosage: UNKNOWN
     Route: 065

REACTIONS (8)
  - Obliterative bronchiolitis [Unknown]
  - Scedosporium infection [Not Recovered/Not Resolved]
  - Off label use [Unknown]
  - Respiratory tract infection viral [Not Recovered/Not Resolved]
  - Respiratory tract infection bacterial [Not Recovered/Not Resolved]
  - Mycobacterium fortuitum infection [Not Recovered/Not Resolved]
  - Respiratory tract infection [None]
  - Hypogammaglobulinaemia [None]
